FAERS Safety Report 5720945-X (Version None)
Quarter: 2008Q2

REPORT INFORMATION
  Report Type: 
  Country: None (occurrence: None)
  Receive Date: 20080423
  Receipt Date: 20080114
  Transmission Date: 20081010
  Serious: Yes (Hospitalization)
  Sender: FDA-Public Use
  Company Number: 254247

PATIENT
  Age: 73 Year
  Sex: Female

DRUGS (7)
  1. AVASTIN [Suspect]
     Indication: COLON CANCER METASTATIC
     Dosage: 5 MG/KG, QOW, INTRAVENOUS
     Route: 042
     Dates: start: 20070924
  2. KYTRIL [Concomitant]
  3. DEXAMETHASONE TAB [Concomitant]
  4. PEPCID [Concomitant]
  5. REGLAN [Concomitant]
  6. LEUCOVORIN CALCIUM [Concomitant]
  7. FLUOROURACIL [Concomitant]

REACTIONS (2)
  - BLOOD PRESSURE INCREASED [None]
  - CEREBRAL INFARCTION [None]
